FAERS Safety Report 4472846-5 (Version None)
Quarter: 2004Q4

REPORT INFORMATION
  Report Type: 
  Country: None (occurrence: None)
  Receive Date: 20041012
  Receipt Date: 20041012
  Transmission Date: 20050328
  Serious: Yes (Other)
  Sender: FDA-Public Use
  Company Number: None

PATIENT
  Sex: Male

DRUGS (1)
  1. CALCIUM IN IV FLUIDS [Suspect]
     Route: 042

REACTIONS (7)
  - BLISTER [None]
  - ERYTHEMA [None]
  - FEELING COLD [None]
  - INJECTION SITE EXTRAVASATION [None]
  - OEDEMA PERIPHERAL [None]
  - PALLOR [None]
  - SKIN DISCOLOURATION [None]
